FAERS Safety Report 8499376-8 (Version None)
Quarter: 2012Q3

REPORT INFORMATION
  Report Type: 
  Country: None (occurrence: None)
  Receive Date: 20120710
  Receipt Date: 20120626
  Transmission Date: 20120928
  Serious: No
  Sender: FDA-Public Use
  Company Number: GR-JNJFOC-20120614724

PATIENT

DRUGS (1)
  1. INFLIXIMAB, RECOMBINANT [Suspect]
     Indication: PSORIATIC ARTHROPATHY
     Route: 042

REACTIONS (7)
  - UPPER RESPIRATORY TRACT INFECTION [None]
  - HYPERSENSITIVITY [None]
  - HEPATIC ENZYME INCREASED [None]
  - HEADACHE [None]
  - DIARRHOEA [None]
  - ORAL HERPES [None]
  - URINARY TRACT INFECTION [None]
